FAERS Safety Report 7814020-8 (Version None)
Quarter: 2011Q4

REPORT INFORMATION
  Report Type: 
  Country: None (occurrence: None)
  Receive Date: 20111014
  Receipt Date: 20111007
  Transmission Date: 20120403
  Serious: Yes (Hospitalization)
  Sender: FDA-Public Use
  Company Number: DE-UCBSA-034725

PATIENT
  Sex: Male
  Weight: 70 kg

DRUGS (5)
  1. METHOTREXATE [Concomitant]
     Indication: RHEUMATOID ARTHRITIS
     Route: 048
     Dates: start: 20110103, end: 20110321
  2. TRAMADOL HCL [Concomitant]
     Dosage: 100MG, 1-0-1
  3. DICLO 75 [Concomitant]
     Indication: RHEUMATOID ARTHRITIS
     Route: 048
     Dates: start: 20110101, end: 20110301
  4. CERTOLIZUMAB PEGOL [Suspect]
     Indication: RHEUMATOID ARTHRITIS
     Dosage: NO. OF DOSES RECEIVED: 2
     Route: 058
     Dates: start: 20110301, end: 20110322
  5. CITALOPRAM [Concomitant]
     Dosage: 20MG, 1/2-0-0

REACTIONS (1)
  - PLEURAL EFFUSION [None]
